FAERS Safety Report 6617571-7 (Version None)
Quarter: 2010Q1

REPORT INFORMATION
  Report Type: 
  Country: None (occurrence: None)
  Receive Date: 20100308
  Receipt Date: 20090608
  Transmission Date: 20100710
  Serious: No
  Sender: FDA-Public Use
  Company Number: US-TYCO HEALTHCARE/MALLINCKRODT-T200901178

PATIENT
  Sex: Male
  Weight: 63.492 kg

DRUGS (4)
  1. ACETAMINOPHEN AND HYDROCODONE BITARTRATE [Suspect]
     Indication: PAIN
     Dosage: ONE TAB Q6HR
     Route: 048
     Dates: start: 20090527, end: 20090606
  2. UNKNOWN NON-STEROIDAL INHALER [Concomitant]
     Indication: DYSPNOEA
     Dosage: UNK
  3. VALIUM [Concomitant]
     Dosage: 10 MG, QD (QAM)
  4. TYLENOL (CAPLET) [Concomitant]
     Dosage: UNK

REACTIONS (6)
  - DIZZINESS [None]
  - DRUG EFFECT DECREASED [None]
  - DYSPNOEA [None]
  - MALAISE [None]
  - NAUSEA [None]
  - WRONG TECHNIQUE IN DRUG USAGE PROCESS [None]
